FAERS Safety Report 8547430-4 (Version None)
Quarter: 2012Q3

REPORT INFORMATION
  Report Type: 
  Country: None (occurrence: None)
  Receive Date: 20120727
  Receipt Date: 20120412
  Transmission Date: 20120928
  Serious: No
  Sender: FDA-Public Use
  Company Number: US-ASTRAZENECA-2012SE24511

PATIENT
  Age: 74 Year
  Sex: Female
  Weight: 81.6 kg

DRUGS (9)
  1. SEROQUEL [Suspect]
     Indication: SLEEP DISORDER
     Dosage: 50 MG IN THE MORNING AS NEEDED AND TAKES TWO 50 MGS AT NIGHT
     Route: 048
     Dates: start: 20110101
  2. NORVASC [Concomitant]
     Indication: BLOOD PRESSURE
  3. DILTIAZEM [Concomitant]
     Indication: CARDIAC DISORDER
  4. SEROQUEL [Suspect]
     Indication: BIPOLAR DISORDER
     Dosage: 50 MG IN THE MORNING AS NEEDED AND TAKES TWO 50 MGS AT NIGHT
     Route: 048
     Dates: start: 20110101
  5. LORAZEPAM [Concomitant]
  6. LASIX [Concomitant]
     Indication: DIURETIC THERAPY
  7. WARFARIN SODIUM [Concomitant]
     Indication: ANTICOAGULANT THERAPY
  8. LEXAPRO [Concomitant]
     Dosage: HALF TABLET OF 10 MG
  9. MUCH MEDICATION [Concomitant]

REACTIONS (8)
  - PAIN IN EXTREMITY [None]
  - JOINT SWELLING [None]
  - DRUG INEFFECTIVE [None]
  - WEIGHT INCREASED [None]
  - CONFUSIONAL STATE [None]
  - CRYING [None]
  - ANXIETY [None]
  - OEDEMA PERIPHERAL [None]
